FAERS Safety Report 11021387 (Version 2)
Quarter: 2015Q2

REPORT INFORMATION
  Report Type: Spontaneous
  Country: BE (occurrence: BE)
  Receive Date: 20150413
  Receipt Date: 20150602
  Transmission Date: 20150821
  Serious: Yes (Death, Hospitalization, Other)
  Sender: FDA-Public Use
  Company Number: BE-JNJFOC-20150400297

PATIENT
  Sex: Male
  Weight: 70.5 kg

DRUGS (1)
  1. STELARA [Suspect]
     Active Substance: USTEKINUMAB
     Indication: PSORIASIS
     Route: 058
     Dates: end: 20150331

REACTIONS (12)
  - Hepatic cancer [Unknown]
  - Bullous lung disease [Unknown]
  - Red blood cells urine [Unknown]
  - Ascites [Unknown]
  - Pleural effusion [Unknown]
  - Back pain [Unknown]
  - Cholelithiasis [Unknown]
  - Ventricular extrasystoles [Unknown]
  - White blood cells urine [Unknown]
  - Dysphonia [Unknown]
  - Death [Fatal]
  - Fracture [Unknown]
